FAERS Safety Report 18948210 (Version 1)
Quarter: 2021Q1

REPORT INFORMATION
  Report Type: Spontaneous
  Country: NL (occurrence: FR)
  Receive Date: 20210226
  Receipt Date: 20210226
  Transmission Date: 20210420
  Serious: Yes (Hospitalization)
  Sender: FDA-Public Use
  Company Number: FR-FRESENIUS KABI-FK202101860

PATIENT
  Age: 37 Year
  Sex: Male

DRUGS (2)
  1. CLINDAMYCIN. [Suspect]
     Active Substance: CLINDAMYCIN
     Indication: INFECTION
     Route: 042
     Dates: start: 20201130, end: 20201221
  2. LEVOFLOXACIN (MANUFACTURER UNKNOWN) [Suspect]
     Active Substance: LEVOFLOXACIN
     Indication: INFECTION
     Route: 042
     Dates: start: 20201204, end: 20201221

REACTIONS (1)
  - Hepatocellular injury [Recovering/Resolving]

NARRATIVE: CASE EVENT DATE: 20201207
